FAERS Safety Report 12674421 (Version 1)
Quarter: 2016Q3

REPORT INFORMATION
  Report Type: Spontaneous
  Country: US (occurrence: US)
  Receive Date: 20160822
  Receipt Date: 20160822
  Transmission Date: 20161109
  Serious: No
  Sender: FDA-Public Use
  Company Number: US-BEH-2016059714

PATIENT
  Sex: Female
  Weight: 70.76 kg

DRUGS (25)
  1. CARDIZEM [Concomitant]
     Active Substance: DILTIAZEM HYDROCHLORIDE
  2. UNIPHYL [Concomitant]
     Active Substance: THEOPHYLLINE ANHYDROUS
  3. CALCIUM [Concomitant]
     Active Substance: CALCIUM
  4. IPRATROPIUM [Concomitant]
     Active Substance: IPRATROPIUM
  5. ZEMAIRA [Suspect]
     Active Substance: .ALPHA.1-PROTEINASE INHIBITOR HUMAN
     Indication: ALPHA-1 ANTI-TRYPSIN DEFICIENCY
     Route: 042
     Dates: start: 20100830
  6. SODIUM CHLORIDE. [Concomitant]
     Active Substance: SODIUM CHLORIDE
  7. METOPROLOL. [Concomitant]
     Active Substance: METOPROLOL
  8. SPIRIVA [Concomitant]
     Active Substance: TIOTROPIUM BROMIDE MONOHYDRATE
  9. AMITRIPTYLINE [Concomitant]
     Active Substance: AMITRIPTYLINE
  10. ZEMAIRA [Suspect]
     Active Substance: .ALPHA.1-PROTEINASE INHIBITOR HUMAN
     Indication: EMPHYSEMA
  11. DIPHENHYDRAMINE. [Concomitant]
     Active Substance: DIPHENHYDRAMINE
  12. OXYGEN. [Concomitant]
     Active Substance: OXYGEN
  13. BIAXIN [Concomitant]
     Active Substance: CLARITHROMYCIN
  14. ROPINIROLE. [Concomitant]
     Active Substance: ROPINIROLE
  15. OMEPRAZOLE. [Concomitant]
     Active Substance: OMEPRAZOLE
  16. LIDOCAINE. [Concomitant]
     Active Substance: LIDOCAINE
  17. NORCO [Concomitant]
     Active Substance: ACETAMINOPHEN\HYDROCODONE BITARTRATE
  18. SYMBICORT [Concomitant]
     Active Substance: BUDESONIDE\FORMOTEROL FUMARATE DIHYDRATE
  19. ALBUTEROL. [Concomitant]
     Active Substance: ALBUTEROL
  20. EPIPEN [Concomitant]
     Active Substance: EPINEPHRINE
  21. PREDNISONE. [Concomitant]
     Active Substance: PREDNISONE
  22. PROAIR HFA [Concomitant]
     Active Substance: ALBUTEROL SULFATE
  23. ALPRAZOLAM. [Concomitant]
     Active Substance: ALPRAZOLAM
  24. CRANBERRY. [Concomitant]
     Active Substance: CRANBERRY
  25. ALENDRONATE [Concomitant]
     Active Substance: ALENDRONATE SODIUM

REACTIONS (1)
  - Nasopharyngitis [Unknown]
